FAERS Safety Report 11359047 (Version 1)
Quarter: 2015Q3

REPORT INFORMATION
  Report Type: Spontaneous
  Country: US (occurrence: US)
  Receive Date: 20150807
  Receipt Date: 20150807
  Transmission Date: 20151125
  Serious: Yes (Hospitalization, Other)
  Sender: FDA-Public Use
  Company Number: US-GLAXOSMITHKLINE-US2015GSK111473

PATIENT
  Age: 70 Year
  Sex: Female

DRUGS (1)
  1. ACYCLOVIR. [Suspect]
     Active Substance: ACYCLOVIR

REACTIONS (7)
  - Neurotoxicity [Recovered/Resolved]
  - Blood creatinine abnormal [Recovered/Resolved]
  - Feeling jittery [Recovered/Resolved]
  - Mental status changes [Recovered/Resolved]
  - Somnolence [Recovered/Resolved]
  - Nervousness [Recovered/Resolved]
  - Thinking abnormal [Recovered/Resolved]
